FAERS Safety Report 16559216 (Version 1)
Quarter: 2019Q3

REPORT INFORMATION
  Report Type: Spontaneous
  Country: DK (occurrence: DK)
  Receive Date: 20190711
  Receipt Date: 20190711
  Transmission Date: 20191004
  Serious: Yes (Other)
  Sender: FDA-Public Use
  Company Number: DK-TEVA-2018-DK-984363

PATIENT
  Age: 75 Year
  Sex: Female

DRUGS (5)
  1. RAMIPRIL. [Concomitant]
     Active Substance: RAMIPRIL
     Indication: HYPERTENSION
     Dosage: 5 MILLIGRAM DAILY;
     Route: 048
     Dates: start: 20120807
  2. ATORVASTATIN ^TEVA^ [Suspect]
     Active Substance: ATORVASTATIN
     Route: 048
     Dates: start: 20170511, end: 20180927
  3. METOPROLOLSUCCINAT ^ORION^ [Concomitant]
     Indication: HEART RATE IRREGULAR
     Dosage: 100 MILLIGRAM DAILY;
     Route: 048
     Dates: start: 20170512
  4. PREGABALIN ^ACCORD^ [Concomitant]
     Indication: NEURALGIA
     Dosage: 450 MILLIGRAM DAILY;
     Route: 048
     Dates: start: 20170803
  5. ESTROFEM [Concomitant]
     Indication: HORMONE THERAPY
     Dosage: STRENGTH: 1 MG
     Route: 048
     Dates: start: 20170519

REACTIONS (8)
  - Leukopenia [Recovering/Resolving]
  - Hepatic enzyme increased [Recovering/Resolving]
  - Myalgia [Recovering/Resolving]
  - Blood creatine phosphokinase increased [Recovering/Resolving]
  - Hepatic function abnormal [Recovering/Resolving]
  - Thrombocytopenia [Recovering/Resolving]
  - Alanine aminotransferase increased [Unknown]
  - Headache [Unknown]

NARRATIVE: CASE EVENT DATE: 201804
